FAERS Safety Report 6841655-1 (Version None)
Quarter: 2010Q3

REPORT INFORMATION
  Report Type: 
  Country: None (occurrence: None)
  Receive Date: 20100714
  Receipt Date: 20070709
  Transmission Date: 20110219
  Serious: No
  Sender: FDA-Public Use
  Company Number: US-PFIZER INC-2007058712

PATIENT
  Sex: Female
  Weight: 33.1 kg

DRUGS (6)
  1. CHANTIX [Suspect]
     Indication: SMOKING CESSATION THERAPY
     Dates: start: 20070702
  2. DILANTIN [Concomitant]
  3. FOSAMAX [Concomitant]
  4. SALBUTAMOL [Concomitant]
  5. NEXIUM [Concomitant]
  6. LIPITOR [Concomitant]

REACTIONS (4)
  - DRUG INTOLERANCE [None]
  - FORMICATION [None]
  - INSOMNIA [None]
  - NAUSEA [None]
